FAERS Safety Report 8735322 (Version 2)
Quarter: 2013Q4

REPORT INFORMATION
  Report Type: Report from Study
  Country: JP (occurrence: JP)
  Receive Date: 20120822
  Receipt Date: 20131107
  Transmission Date: 20140711
  Serious: Yes (Other)
  Sender: FDA-Public Use
  Company Number: JP-009507513-1207JPN007954

PATIENT
  Age: 66 Year
  Sex: Male
  Weight: 87 kg

DRUGS (22)
  1. PEGINTRON [Suspect]
     Indication: HEPATITIS C
     Dosage: 1.5 MICROGRAM, QW
     Route: 058
     Dates: start: 20120613
  2. REBETOL [Suspect]
     Indication: HEPATITIS C
     Dosage: 600 MG, QD
     Route: 048
     Dates: start: 20120613
  3. REBETOL [Suspect]
     Dosage: 1000 MG, QD
     Route: 048
     Dates: start: 20120613, end: 20120710
  4. REBETOL [Suspect]
     Dosage: 400 MG, QD
     Route: 048
     Dates: start: 20120711
  5. TELAVIC [Suspect]
     Indication: HEPATITIS C
     Dosage: 2250 MG, QD
     Route: 048
     Dates: start: 20120613, end: 20120703
  6. TELAVIC [Suspect]
     Dosage: 1500 MG, QD
     Route: 048
     Dates: start: 20120704
  7. PROHEPARUM [Concomitant]
     Indication: HEPATITIS C
     Dosage: DOSAGE IS UNCERTAIN DURING A DAY.
     Route: 048
  8. DIOVAN [Concomitant]
     Indication: HYPERTENSION
     Route: 048
  9. ALDACTONE A [Concomitant]
     Indication: HYPERTENSION
     Route: 048
  10. JANUVIA TABLETS 50MG [Concomitant]
     Route: 048
  11. NAIXAN [Concomitant]
     Indication: PROPHYLAXIS
     Route: 048
     Dates: start: 20120612
  12. MUCOSTA [Concomitant]
     Indication: PROPHYLAXIS
     Route: 048
     Dates: start: 20120612
  13. VOLTAREN [Concomitant]
     Indication: PROPHYLAXIS
     Route: 054
     Dates: start: 20120612
  14. NAUZELIN [Concomitant]
     Indication: PROPHYLAXIS
     Route: 048
     Dates: start: 20120615
  15. LOXONIN [Concomitant]
     Indication: PROPHYLAXIS
     Route: 048
     Dates: start: 20120615
  16. LENDORMIN D [Concomitant]
     Indication: PROPHYLAXIS
     Route: 048
     Dates: start: 20120621
  17. EURODIN (ESTAZOLAM) [Concomitant]
     Indication: PROPHYLAXIS
     Route: 048
     Dates: start: 20120624
  18. URSO [Concomitant]
     Indication: HEPATITIS C
     Route: 048
     Dates: start: 20120625
  19. DOGMATYL [Concomitant]
     Indication: PROPHYLAXIS
     Route: 048
     Dates: start: 20120625
  20. TAKEPRON [Concomitant]
     Indication: PROPHYLAXIS
     Route: 048
     Dates: start: 20120626
  21. ACTOS [Concomitant]
     Indication: PROPHYLAXIS
     Route: 048
     Dates: start: 20120626
  22. DEPAS [Concomitant]
     Indication: PROPHYLAXIS
     Route: 048
     Dates: start: 20120627

REACTIONS (5)
  - Blood urea increased [Recovering/Resolving]
  - Blood creatinine increased [Not Recovered/Not Resolved]
  - Malaise [Not Recovered/Not Resolved]
  - Decreased appetite [Not Recovered/Not Resolved]
  - Blood creatinine increased [Not Recovered/Not Resolved]
